FAERS Safety Report 13641917 (Version 1)
Quarter: 2017Q2

REPORT INFORMATION
  Report Type: Spontaneous
  Country: US (occurrence: US)
  Receive Date: 20170609
  Receipt Date: 20170609
  Transmission Date: 20170830
  Serious: Yes (Hospitalization)
  Sender: FDA-Public Use
  Company Number: None

PATIENT
  Age: 75 Year
  Sex: Male
  Weight: 108 kg

DRUGS (1)
  1. PIOGLITAZONE. [Suspect]
     Active Substance: PIOGLITAZONE
     Indication: DIABETES MELLITUS
     Dosage: AM
     Route: 048
     Dates: start: 20070423, end: 20170418

REACTIONS (2)
  - Left ventricular failure [None]
  - Ejection fraction decreased [None]

NARRATIVE: CASE EVENT DATE: 20170404
